FAERS Safety Report 14229920 (Version 1)
Quarter: 2017Q4

REPORT INFORMATION
  Report Type: Spontaneous
  Country: US (occurrence: US)
  Receive Date: 20171128
  Receipt Date: 20171128
  Transmission Date: 20180321
  Serious: Yes (Other)
  Sender: FDA-Public Use
  Company Number: US-AMGEN-USASP2017176225

PATIENT
  Age: 65 Year
  Sex: Female

DRUGS (1)
  1. PROLIA [Suspect]
     Active Substance: DENOSUMAB
     Indication: OSTEOPOROSIS
     Dosage: UNK
     Route: 065

REACTIONS (10)
  - Ligament rupture [Unknown]
  - Bone density abnormal [Unknown]
  - Fall [Unknown]
  - Renal pain [Unknown]
  - Loss of personal independence in daily activities [Unknown]
  - Jaw disorder [Unknown]
  - Back pain [Unknown]
  - Bone disorder [Unknown]
  - Walking aid user [Unknown]
  - Tooth disorder [Unknown]
